APPROVED DRUG PRODUCT: AZATHIOPRINE
Active Ingredient: AZATHIOPRINE
Strength: 50MG
Dosage Form/Route: TABLET;ORAL
Application: A077621 | Product #001 | TE Code: AB
Applicant: ZYDUS PHARMACEUTICALS USA INC
Approved: Mar 15, 2007 | RLD: No | RS: No | Type: RX